FAERS Safety Report 19399470 (Version 1)
Quarter: 2021Q2

REPORT INFORMATION
  Report Type: Spontaneous
  Country: US (occurrence: US)
  Receive Date: 20210610
  Receipt Date: 20210610
  Transmission Date: 20210717
  Serious: Yes (Other)
  Sender: FDA-Public Use
  Company Number: NVSC2021US121474

PATIENT
  Sex: Female

DRUGS (10)
  1. NILOTINIB [Suspect]
     Active Substance: NILOTINIB
     Indication: PRODUCT USED FOR UNKNOWN INDICATION
     Dosage: UNK
     Route: 065
     Dates: start: 20180208, end: 20180830
  2. OMACETAXINE [Suspect]
     Active Substance: OMACETAXINE
     Indication: PRODUCT USED FOR UNKNOWN INDICATION
     Dosage: UNK
     Route: 065
     Dates: start: 20191028
  3. ASCIMINIB [Suspect]
     Active Substance: ASCIMINIB
     Indication: CHRONIC MYELOID LEUKAEMIA
     Dosage: 400 MG, BID
     Route: 065
  4. IMATINIB. [Suspect]
     Active Substance: IMATINIB MESYLATE
     Indication: PRODUCT USED FOR UNKNOWN INDICATION
     Dosage: UNK
     Route: 065
     Dates: start: 20171027, end: 20180120
  5. NILOTINIB [Suspect]
     Active Substance: NILOTINIB
     Dosage: 50 MG, QD
     Route: 065
     Dates: start: 20190728
  6. OMACETAXINE [Suspect]
     Active Substance: OMACETAXINE
     Dosage: 5 DAYS Q28
     Route: 065
     Dates: start: 202001
  7. BOSUTINIB [Suspect]
     Active Substance: BOSUTINIB
     Indication: PRODUCT USED FOR UNKNOWN INDICATION
     Dosage: UNK
     Route: 065
     Dates: start: 20171228, end: 20190315
  8. DASATINIB. [Suspect]
     Active Substance: DASATINIB
     Indication: PRODUCT USED FOR UNKNOWN INDICATION
     Dosage: UNK
     Route: 065
     Dates: start: 20180728, end: 20180927
  9. PONATINIB [Suspect]
     Active Substance: PONATINIB
     Indication: PRODUCT USED FOR UNKNOWN INDICATION
     Dosage: UNK
     Route: 065
  10. OMACETAXINE [Suspect]
     Active Substance: OMACETAXINE
     Dosage: 3 DAYS Q28
     Route: 065
     Dates: start: 202004

REACTIONS (8)
  - Swelling [Unknown]
  - Pruritus [Unknown]
  - Headache [Unknown]
  - Rash pruritic [Unknown]
  - Thrombocytopenia [Unknown]
  - Cytopenia [Unknown]
  - Urticaria [Unknown]
  - Liver function test increased [Unknown]
